FAERS Safety Report 5382222-9 (Version None)
Quarter: 2007Q3

REPORT INFORMATION
  Report Type: 
  Country: None (occurrence: None)
  Receive Date: 20070709
  Receipt Date: 20070628
  Transmission Date: 20080115
  Serious: Yes (Death)
  Sender: FDA-Public Use
  Company Number: DE-JNJFOC-20070606764

PATIENT
  Age: 5 Year
  Sex: Male

DRUGS (2)
  1. ITRACONAZOLE [Suspect]
     Indication: STEM CELL TRANSPLANT
     Route: 048
  2. STEROID [Concomitant]
     Route: 065

REACTIONS (1)
  - DRUG LEVEL DECREASED [None]
